FAERS Safety Report 20920767 (Version 1)
Quarter: 2022Q2

REPORT INFORMATION
  Report Type: Spontaneous
  Country: US (occurrence: None)
  Receive Date: 20220606
  Receipt Date: 20220606
  Transmission Date: 20220721
  Serious: Yes (Hospitalization, Disabling, Other)
  Sender: FDA-Public Use
  Company Number: None

PATIENT
  Age: 50 Year
  Sex: Female
  Weight: 58.5 kg

DRUGS (18)
  1. OXYCONTIN [Suspect]
     Active Substance: OXYCODONE HYDROCHLORIDE
     Indication: Pain
     Dosage: OTHER QUANTITY : 1 TABLET(S);?FREQUENCY : EVERY 8 HOURS;?
     Route: 048
     Dates: start: 20190901, end: 20220423
  2. PERCOCET [Suspect]
     Active Substance: ACETAMINOPHEN\OXYCODONE HYDROCHLORIDE
     Indication: Pain
     Dosage: OTHER QUANTITY : 1 TABLET(S);?FREQUENCY : AS NEEDED;?
     Route: 048
     Dates: start: 20090601, end: 20220423
  3. ADDERALL [Concomitant]
     Active Substance: AMPHETAMINE ASPARTATE\AMPHETAMINE SULFATE\DEXTROAMPHETAMINE SACCHARATE\DEXTROAMPHETAMINE SULFATE
  4. Accolade [Concomitant]
  5. CYMBALTA [Concomitant]
     Active Substance: DULOXETINE HYDROCHLORIDE
  6. resipridol [Concomitant]
  7. LORATADINE [Concomitant]
     Active Substance: LORATADINE
  8. FAMOTIDINE [Concomitant]
     Active Substance: FAMOTIDINE
  9. DIPHENHYDRAMINE [Concomitant]
     Active Substance: DIPHENHYDRAMINE
  10. XOLAIR [Concomitant]
     Active Substance: OMALIZUMAB
  11. Plaquinil [Concomitant]
  12. ASPIRIN [Concomitant]
     Active Substance: ASPIRIN
  13. QUERCETIN [Concomitant]
     Active Substance: QUERCETIN
  14. Vitamin D3 w K@ [Concomitant]
  15. DIETARY SUPPLEMENT [Concomitant]
     Active Substance: DIETARY SUPPLEMENT
  16. VITAMIN C [Concomitant]
     Active Substance: ASCORBIC ACID
  17. DIETARY SUPPLEMENT\RESVERATROL [Concomitant]
     Active Substance: DIETARY SUPPLEMENT\RESVERATROL
  18. LUTEOLIN [Concomitant]

REACTIONS (18)
  - Schizophrenia [None]
  - Drug hypersensitivity [None]
  - Nervousness [None]
  - Drug hypersensitivity [None]
  - Mast cell activation syndrome [None]
  - Weight decreased [None]
  - Multiple allergies [None]
  - Aphasia [None]
  - Dysarthria [None]
  - Somnolence [None]
  - Feeling abnormal [None]
  - Decreased appetite [None]
  - Loss of consciousness [None]
  - Fall [None]
  - Obsessive thoughts [None]
  - Cognitive disorder [None]
  - Cerebrovascular accident [None]
  - Breakthrough pain [None]

NARRATIVE: CASE EVENT DATE: 20220424
